FAERS Safety Report 8413423 (Version 2)
Quarter: 2012Q4

REPORT INFORMATION
  Report Type: Report from Study
  Country: DK (occurrence: DK)
  Receive Date: 20120217
  Receipt Date: 20121228
  Transmission Date: 20130627
  Serious: Yes (Hospitalization)
  Sender: FDA-Public Use
  Company Number: DK-ABBOTT-12P-044-0902811-01

PATIENT
  Age: 31 Year
  Sex: Female

DRUGS (7)
  1. HUMIRA [Suspect]
     Indication: CROHN^S DISEASE
     Route: 058
     Dates: start: 20090819, end: 20090819
  2. HUMIRA [Suspect]
     Route: 058
     Dates: end: 20100216
  3. PREDNISOLONE [Concomitant]
     Indication: CROHN^S DISEASE
     Dates: start: 20091125
  4. CALCIUM D3 [Concomitant]
     Indication: STEROID THERAPY
     Dates: start: 20091125
  5. MULTITABS [Concomitant]
     Indication: VITAMIN SUPPLEMENTATION
     Dates: start: 20090808
  6. FERROUS SULFATE [Concomitant]
     Indication: IRON DEFICIENCY
     Dates: start: 20091126
  7. PINEX [Concomitant]
     Indication: PAIN
     Dates: start: 20090330

REACTIONS (3)
  - Crohn^s disease [Unknown]
  - Crohn^s disease [Unknown]
  - Crohn^s disease [Unknown]
